FAERS Safety Report 6661352-5 (Version None)
Quarter: 2010Q1

REPORT INFORMATION
  Report Type: 
  Country: None (occurrence: None)
  Receive Date: 20100331
  Receipt Date: 20100326
  Transmission Date: 20100710
  Serious: Yes (Death, Hospitalization, Other)
  Sender: FDA-Public Use
  Company Number: JP-JNJFOC-20091004602

PATIENT
  Sex: Female
  Weight: 51 kg

DRUGS (7)
  1. DOXIL [Suspect]
     Indication: OVARIAN CANCER RECURRENT
     Route: 042
  2. DECADRON [Concomitant]
     Indication: PROPHYLAXIS
     Route: 048
  3. PYDOXAL [Concomitant]
     Indication: PROPHYLAXIS
     Route: 048
  4. GLYSENNID [Concomitant]
     Route: 048
  5. MAGNESIUM OXIDE [Concomitant]
     Route: 048
  6. SUNRYTHM [Concomitant]
     Route: 048
  7. WARFARIN SODIUM [Concomitant]
     Route: 048

REACTIONS (4)
  - ASCITES [None]
  - DECREASED APPETITE [None]
  - HYPONATRAEMIA [None]
  - OVARIAN CANCER [None]
